FAERS Safety Report 8585350-X (Version None)
Quarter: 2012Q3

REPORT INFORMATION
  Report Type: 
  Country: None (occurrence: None)
  Receive Date: 20120810
  Receipt Date: 20120806
  Transmission Date: 20120928
  Serious: Yes (Hospitalization)
  Sender: FDA-Public Use
  Company Number: FR-PFIZER INC-2012190247

PATIENT
  Age: 41 Year
  Sex: Female

DRUGS (7)
  1. TRAMADOL [Concomitant]
     Dosage: UNK
     Dates: start: 20120403
  2. PARACETAMOL [Concomitant]
     Dosage: UNK
     Dates: start: 20120403
  3. NEXIUM [Concomitant]
     Dosage: UNK
     Dates: start: 20120403
  4. TAZOBACTAM [Suspect]
     Dosage: UNK
     Dates: start: 20120508
  5. LOVENOX [Suspect]
     Dosage: UNK
     Dates: start: 20120412
  6. FLUCONAZOLE [Suspect]
     Dosage: UNK
     Dates: start: 20120402, end: 20120421
  7. TAZOBACTAM [Suspect]
     Dosage: UNK
     Dates: start: 20120402, end: 20120421

REACTIONS (1)
  - PANCYTOPENIA [None]
